FAERS Safety Report 8355351-5 (Version None)
Quarter: 2012Q2

REPORT INFORMATION
  Report Type: 
  Country: None (occurrence: None)
  Receive Date: 20120511
  Receipt Date: 20120502
  Transmission Date: 20120825
  Serious: Yes (Other)
  Sender: FDA-Public Use
  Company Number: DE-SANOFI-AVENTIS-2012SA030629

PATIENT
  Age: 35 Year
  Sex: Female

DRUGS (9)
  1. ANTIDEPRESSANTS [Suspect]
     Indication: DEPRESSION
     Route: 048
     Dates: end: 20100218
  2. OMEPRAZOLE [Concomitant]
     Indication: GASTRITIS PROPHYLAXIS
     Route: 048
  3. ANTACIDS [Concomitant]
     Indication: GASTRITIS PROPHYLAXIS
     Route: 048
  4. MELPERONE [Suspect]
     Indication: DEPRESSION
     Route: 048
     Dates: end: 20100218
  5. FOLIC ACID [Concomitant]
     Indication: VITAMIN SUPPLEMENTATION
     Route: 048
  6. MEPERIDINE HCL [Suspect]
     Indication: PAIN
     Dosage: UP TO 9 TIMES A DAY AS NEEDED
     Route: 048
  7. HALDOL [Concomitant]
     Indication: DEPRESSION
     Route: 048
     Dates: end: 20100218
  8. HYDROXYUREA [Suspect]
     Dosage: VARYING DOSES UP TO MAX. 1000 MG/DAY
     Route: 048
     Dates: end: 20100218
  9. MORPHINE [Suspect]
     Indication: PAIN
     Dosage: 40 MG, SLOW INCREASE TO 300 MG/DAY
     Route: 048

REACTIONS (5)
  - SICKLE CELL ANAEMIA WITH CRISIS [None]
  - MATERNAL EXPOSURE DURING PREGNANCY [None]
  - POLYHYDRAMNIOS [None]
  - PYREXIA [None]
  - LABORATORY TEST ABNORMAL [None]
